FAERS Safety Report 7315051-7 (Version None)
Quarter: 2011Q1

REPORT INFORMATION
  Report Type: 
  Country: None (occurrence: None)
  Receive Date: 20110225
  Receipt Date: 20100322
  Transmission Date: 20110831
  Serious: Yes (Other)
  Sender: FDA-Public Use
  Company Number: US-MYLANLABS-2010S1004835

PATIENT
  Sex: Male

DRUGS (4)
  1. AMNESTEEM [Suspect]
     Indication: ACNE
     Dates: start: 20031101, end: 20031201
  2. ACCUTANE [Suspect]
     Dates: start: 20040101, end: 20040401
  3. ACCUTANE [Suspect]
     Indication: ACNE
     Dates: start: 20020801, end: 20030301
  4. SOTRET [Suspect]
     Indication: ACNE
     Dates: start: 20031201, end: 20040101

REACTIONS (1)
  - INFLAMMATORY BOWEL DISEASE [None]
